FAERS Safety Report 20347073 (Version 1)
Quarter: 2022Q1

REPORT INFORMATION
  Report Type: Spontaneous
  Country: GB (occurrence: GB)
  Receive Date: 20220118
  Receipt Date: 20220118
  Transmission Date: 20220423
  Serious: Yes (Other)
  Sender: FDA-Public Use
  Company Number: GB-GE HEALTHCARE-2022CSU000208

PATIENT

DRUGS (3)
  1. CLARISCAN [Suspect]
     Active Substance: GADOTERATE MEGLUMINE
     Indication: Magnetic resonance imaging pancreas
     Dosage: 13 ML, SINGLE
     Route: 042
     Dates: start: 20210809, end: 20210809
  2. CLARISCAN [Suspect]
     Active Substance: GADOTERATE MEGLUMINE
     Indication: Intraductal papillary mucinous neoplasm
  3. IRON [Concomitant]
     Active Substance: IRON
     Dosage: UNK
     Route: 041
     Dates: start: 20210803, end: 20210803

REACTIONS (5)
  - Feeling abnormal [Not Recovered/Not Resolved]
  - Myalgia [Not Recovered/Not Resolved]
  - Arthralgia [Not Recovered/Not Resolved]
  - Fatigue [Not Recovered/Not Resolved]
  - Nausea [Not Recovered/Not Resolved]
